FAERS Safety Report 6092111-2 (Version None)
Quarter: 2009Q1

REPORT INFORMATION
  Report Type: 
  Country: None (occurrence: None)
  Receive Date: 20090223
  Receipt Date: 20090212
  Transmission Date: 20090719
  Serious: Yes (Hospitalization, Other)
  Sender: FDA-Public Use
  Company Number: 1000003303

PATIENT
  Age: 81 Year
  Sex: Male

DRUGS (6)
  1. LEXAPRO [Suspect]
     Indication: DEMENTIA ALZHEIMER'S TYPE
     Dosage: 20 MG (20 MG,  1 IN 1 D), ORAL
     Route: 048
     Dates: start: 20070101, end: 20081101
  2. ARICEPT [Concomitant]
  3. CELEBREX [Concomitant]
  4. ASPIRIN [Concomitant]
  5. GLUCOSAMINE(TABLETS) [Concomitant]
  6. NAMENDA [Concomitant]

REACTIONS (4)
  - CATARACT [None]
  - COORDINATION ABNORMAL [None]
  - DIZZINESS [None]
  - NAUSEA [None]
